FAERS Safety Report 4662198-X (Version None)
Quarter: 2005Q2

REPORT INFORMATION
  Report Type: 
  Country: None (occurrence: None)
  Receive Date: 20050516
  Receipt Date: 20050314
  Transmission Date: 20051028
  Serious: Yes (Other)
  Sender: FDA-Public Use
  Company Number: 200510651EU

PATIENT
  Age: 32 Year
  Sex: Male

DRUGS (1)
  1. RIFAMPIN AND ISONIAZID [Suspect]
     Indication: INFECTION PROPHYLAXIS

REACTIONS (4)
  - ASTHENIA [None]
  - CHILLS [None]
  - HEPATIC FUNCTION ABNORMAL [None]
  - PAIN IN EXTREMITY [None]
